FAERS Safety Report 10939990 (Version 1)
Quarter: 2015Q1

REPORT INFORMATION
  Report Type: Spontaneous
  Country: US (occurrence: None)
  Receive Date: 20150212
  Receipt Date: 20150212
  Transmission Date: 20150721
  Serious: Yes (Other)
  Sender: FDA-Public Use
  Company Number: TPA2012A08463

PATIENT
  Age: 63 Year
  Sex: Male
  Weight: 95.26 kg

DRUGS (1)
  1. ULORIC [Suspect]
     Active Substance: FEBUXOSTAT
     Indication: GOUT
     Dosage: 40 MG, 1/2 TABLET
     Route: 048
     Dates: start: 201210, end: 201210

REACTIONS (7)
  - Transient ischaemic attack [None]
  - Confusional state [None]
  - Dysarthria [None]
  - Vision blurred [None]
  - Reading disorder [None]
  - Aphasia [None]
  - Headache [None]
